FAERS Safety Report 8444922-3 (Version None)
Quarter: 2012Q2

REPORT INFORMATION
  Report Type: 
  Country: None (occurrence: None)
  Receive Date: 20120618
  Receipt Date: 20120424
  Transmission Date: 20120825
  Serious: Yes (Hospitalization)
  Sender: FDA-Public Use
  Company Number: US-ROCHE-1008941

PATIENT
  Sex: Male
  Weight: 108.08 kg

DRUGS (11)
  1. PEGASYS [Suspect]
     Indication: HEPATITIS C
     Route: 058
     Dates: start: 20110903, end: 20111005
  2. ALDACTONE [Concomitant]
     Route: 048
  3. ASCORBIC ACID [Concomitant]
     Route: 048
  4. PROPRANOLOL HYDROCHLORIDE [Concomitant]
     Route: 048
  5. LIV 52 (POLAND) [Concomitant]
     Route: 048
  6. VITAMIN D [Concomitant]
     Route: 048
  7. RIBAVIRIN [Suspect]
     Indication: HEPATITIS C
     Route: 048
     Dates: start: 20110903, end: 20111005
  8. MILK THISTLE [Concomitant]
     Route: 048
  9. INCIVEK [Suspect]
     Indication: HEPATITIS C
     Route: 048
     Dates: start: 20110903, end: 20111005
  10. PRILOSEC [Concomitant]
     Indication: GASTROOESOPHAGEAL REFLUX DISEASE
     Route: 048
  11. VITAMIN E [Concomitant]
     Route: 048

REACTIONS (7)
  - COLITIS [None]
  - VOMITING [None]
  - LEUKOPENIA [None]
  - ABDOMINAL PAIN LOWER [None]
  - MELAENA [None]
  - DIARRHOEA [None]
  - THROMBOCYTOPENIA [None]
